FAERS Safety Report 5743791-X (Version None)
Quarter: 2008Q2

REPORT INFORMATION
  Report Type: 
  Country: None (occurrence: None)
  Receive Date: 20080516
  Receipt Date: 20080516
  Transmission Date: 20081010
  Serious: Yes (Hospitalization)
  Sender: FDA-Public Use
  Company Number: None

PATIENT
  Sex: Female
  Weight: 66 kg

DRUGS (2)
  1. CARBOPLATIN [Suspect]
     Dosage: 2460 MG
  2. TAXOL [Suspect]
     Dosage: 1025 MG

REACTIONS (13)
  - ASTHENIA [None]
  - BLOOD MAGNESIUM DECREASED [None]
  - BODY TEMPERATURE INCREASED [None]
  - CHRONIC OBSTRUCTIVE PULMONARY DISEASE [None]
  - CONDITION AGGRAVATED [None]
  - COUGH [None]
  - DISCOMFORT [None]
  - DYSPNOEA [None]
  - GAIT DISTURBANCE [None]
  - MYALGIA [None]
  - NEUROPATHY PERIPHERAL [None]
  - NEUTROPHIL COUNT DECREASED [None]
  - PRODUCTIVE COUGH [None]
